FAERS Safety Report 6385759-9 (Version None)
Quarter: 2009Q4

REPORT INFORMATION
  Report Type: 
  Country: None (occurrence: None)
  Receive Date: 20091002
  Receipt Date: 20081003
  Transmission Date: 20100525
  Serious: No
  Sender: FDA-Public Use
  Company Number: US-ASTRAZENECA-2008UW21703

PATIENT
  Age: 58 Year
  Sex: Female

DRUGS (4)
  1. ARIMIDEX [Suspect]
     Route: 048
     Dates: start: 20080611
  2. TOPAMAX [Concomitant]
  3. DEXADRINE [Concomitant]
  4. LEVOTHYROXINE SODIUM [Concomitant]

REACTIONS (4)
  - ABNORMAL DREAMS [None]
  - ARTHRALGIA [None]
  - NAUSEA [None]
  - POOR QUALITY SLEEP [None]
